FAERS Safety Report 18431216 (Version 1)
Quarter: 2020Q4

REPORT INFORMATION
  Report Type: Spontaneous
  Country: US (occurrence: US)
  Receive Date: 20201027
  Receipt Date: 20201027
  Transmission Date: 20210114
  Serious: Yes (Life-Threatening, Hospitalization)
  Sender: FDA-Public Use
  Company Number: US-STRIDES ARCOLAB LIMITED-2020SP012641

PATIENT
  Age: 73 Year
  Sex: Male

DRUGS (12)
  1. SULFAMETHOXAZOLE;TRIMETHOPRIM [Concomitant]
     Active Substance: SULFAMETHOXAZOLE\TRIMETHOPRIM
     Indication: PNEUMONIA
     Dosage: UNK
     Route: 065
     Dates: start: 2020, end: 2020
  2. VANCOMYCIN [Suspect]
     Active Substance: VANCOMYCIN
     Indication: PNEUMONIA BACTERIAL
     Dosage: UNK
     Route: 065
     Dates: start: 202002
  3. TACROLIMUS. [Suspect]
     Active Substance: TACROLIMUS
     Indication: RENAL TRANSPLANT
     Dosage: UNK
     Route: 065
  4. PREDNISOLONE. [Suspect]
     Active Substance: PREDNISOLONE
     Dosage: HIGH DOSE
     Route: 065
     Dates: start: 202002, end: 202002
  5. AZITHROMYCIN ANHYDROUS. [Suspect]
     Active Substance: AZITHROMYCIN ANHYDROUS
     Indication: PNEUMONIA BACTERIAL
     Dosage: UNK
     Route: 065
     Dates: start: 202002
  6. PIPERACILLIN/TAZOBACTAM [Suspect]
     Active Substance: PIPERACILLIN SODIUM\TAZOBACTAM SODIUM
     Indication: PNEUMONIA BACTERIAL
     Dosage: UNK
     Route: 065
     Dates: start: 202002
  7. PRIMAQUINE [Concomitant]
     Active Substance: PRIMAQUINE PHOSPHATE
     Indication: PNEUMONIA
     Dosage: UNK
     Route: 065
     Dates: start: 2020
  8. PREDNISOLONE. [Suspect]
     Active Substance: PREDNISOLONE
     Indication: RENAL TRANSPLANT
     Dosage: UNK
     Route: 065
  9. PREDNISOLONE. [Suspect]
     Active Substance: PREDNISOLONE
     Dosage: DOSE INCREASED
     Route: 065
     Dates: start: 2020, end: 2020
  10. PREDNISOLONE. [Suspect]
     Active Substance: PREDNISOLONE
     Dosage: TAPER
     Route: 065
     Dates: start: 202002
  11. MYCOPHENOLATE MOFETIL. [Suspect]
     Active Substance: MYCOPHENOLATE MOFETIL
     Indication: RENAL TRANSPLANT
     Dosage: UNK
     Route: 065
     Dates: end: 2020
  12. CLINDAMYCIN. [Concomitant]
     Active Substance: CLINDAMYCIN
     Indication: PNEUMONIA
     Dosage: UNK
     Route: 065
     Dates: start: 2020

REACTIONS (11)
  - Anaemia [Unknown]
  - Acute respiratory failure [Recovered/Resolved]
  - Dyspnoea [Recovered/Resolved]
  - Fluid overload [Unknown]
  - Off label use [Unknown]
  - Hypertension [Recovered/Resolved]
  - Acute respiratory distress syndrome [Recovered/Resolved]
  - Pneumatosis intestinalis [Recovered/Resolved]
  - Tachypnoea [Recovered/Resolved]
  - Acute kidney injury [Unknown]
  - COVID-19 [Recovered/Resolved]

NARRATIVE: CASE EVENT DATE: 20200120
